FAERS Safety Report 7548770-8 (Version None)
Quarter: 2011Q2

REPORT INFORMATION
  Report Type: 
  Country: None (occurrence: None)
  Receive Date: 20110615
  Receipt Date: 20110613
  Transmission Date: 20111010
  Serious: Yes (Other)
  Sender: FDA-Public Use
  Company Number: AE-PFIZER INC-2011129898

PATIENT
  Sex: Male

DRUGS (1)
  1. LYRICA [Suspect]
     Dosage: UNK
     Route: 048
     Dates: start: 20100301, end: 20110301

REACTIONS (4)
  - DRUG ABUSE [None]
  - DISCOMFORT [None]
  - DEAFNESS [None]
  - PANIC ATTACK [None]
